FAERS Safety Report 4707981-7 (Version None)
Quarter: 2005Q2

REPORT INFORMATION
  Report Type: 
  Country: None (occurrence: None)
  Receive Date: 20050629
  Receipt Date: 20050502
  Transmission Date: 20051028
  Serious: No
  Sender: FDA-Public Use
  Company Number: 05P-163-0299126-00

PATIENT
  Age: 10 Year
  Sex: Female
  Weight: 34.0198 kg

DRUGS (3)
  1. HUMIRA [Suspect]
     Indication: LEUKOCYTOCLASTIC VASCULITIS
     Dosage: 40 MG, 1 IN 2 WK, SUBCUTANEOUS
     Route: 058
     Dates: start: 20050409, end: 20050501
  2. PREDNISONE TAB [Concomitant]
  3. IMMUNOGLOBULINS [Concomitant]

REACTIONS (1)
  - INJECTION SITE PAIN [None]
